FAERS Safety Report 13289277 (Version 2)
Quarter: 2017Q1

REPORT INFORMATION
  Report Type: Spontaneous
  Country: US (occurrence: US)
  Receive Date: 20170302
  Receipt Date: 20170329
  Transmission Date: 20170428
  Serious: Yes (Other)
  Sender: FDA-Public Use
  Company Number: US-ASTRAZENECA-2017SE21901

PATIENT
  Age: 72 Year
  Sex: Female

DRUGS (1)
  1. TUDORZA PRESSAIR [Suspect]
     Active Substance: ACLIDINIUM BROMIDE
     Indication: CHRONIC OBSTRUCTIVE PULMONARY DISEASE
     Route: 055
     Dates: start: 2015

REACTIONS (6)
  - Metastases to liver [Not Recovered/Not Resolved]
  - Metastases to bone [Not Recovered/Not Resolved]
  - Metastases to reproductive organ [Not Recovered/Not Resolved]
  - Device malfunction [Unknown]
  - Malignant neoplasm progression [Not Recovered/Not Resolved]
  - Metastases to kidney [Not Recovered/Not Resolved]

NARRATIVE: CASE EVENT DATE: 2016
